FAERS Safety Report 9371147 (Version 1)
Quarter: 2013Q2

REPORT INFORMATION
  Report Type: Spontaneous
  Country: US (occurrence: None)
  Receive Date: 20130626
  Receipt Date: 20130626
  Transmission Date: 20140414
  Serious: No
  Sender: FDA-Public Use
  Company Number: None

PATIENT
  Sex: Female
  Weight: 47.63 kg

DRUGS (1)
  1. SULINDAC [Suspect]
     Indication: SPINAL OSTEOARTHRITIS
     Dates: start: 20130302, end: 20130315

REACTIONS (5)
  - Nausea [None]
  - Chest discomfort [None]
  - Diarrhoea [None]
  - Asthenia [None]
  - Sleep disorder [None]
